FAERS Safety Report 5601457-0 (Version None)
Quarter: 2008Q1

REPORT INFORMATION
  Report Type: 
  Country: None (occurrence: None)
  Receive Date: 20080124
  Receipt Date: 20080115
  Transmission Date: 20080703
  Serious: Yes (Other)
  Sender: FDA-Public Use
  Company Number: US-ASTRAZENECA-2006UW27785

PATIENT
  Age: 677 Month
  Sex: Female
  Weight: 71.8 kg

DRUGS (3)
  1. SEROQUEL [Suspect]
     Indication: INSOMNIA
     Route: 048
     Dates: start: 20040501, end: 20051101
  2. ANTIDEPRESSANTS [Concomitant]
     Indication: DEPRESSION
     Route: 048
     Dates: start: 19950101
  3. ORAL AGENTS FOR HYPERGLYCEMIA [Concomitant]
     Route: 048

REACTIONS (4)
  - DIABETES MELLITUS [None]
  - HYPERTENSION [None]
  - INTERVERTEBRAL DISC PROTRUSION [None]
  - NEUROPATHY PERIPHERAL [None]
